FAERS Safety Report 24263577 (Version 2)
Quarter: 2024Q3

REPORT INFORMATION
  Report Type: Spontaneous
  Country: CA (occurrence: CA)
  Receive Date: 20240829
  Receipt Date: 20240904
  Transmission Date: 20241016
  Serious: Yes (Disabling)
  Sender: PFIZER
  Company Number: CA-PFIZER INC-202400242800

PATIENT
  Age: 74 Year
  Sex: Female

DRUGS (2)
  1. RUXIENCE [Suspect]
     Active Substance: RITUXIMAB-PVVR
     Indication: Rheumatoid arthritis
     Dosage: 1000 MG, ON DAY 1 AND DAY 15
     Route: 042
     Dates: start: 20240812, end: 20240812
  2. METHOTREXATE [Concomitant]
     Active Substance: METHOTREXATE
     Dosage: 1 DF
     Route: 065
     Dates: start: 20130901, end: 20201104

REACTIONS (4)
  - Fall [Unknown]
  - Muscular weakness [Unknown]
  - Gait disturbance [Unknown]
  - Anxiety [Unknown]

NARRATIVE: CASE EVENT DATE: 20240801
